FAERS Safety Report 14321387 (Version 2)
Quarter: 2018Q1

REPORT INFORMATION
  Report Type: Spontaneous
  Country: US (occurrence: US)
  Receive Date: 20171223
  Receipt Date: 20180306
  Transmission Date: 20180509
  Serious: Yes (Other)
  Sender: FDA-Public Use
  Company Number: US-GLAXOSMITHKLINE-US2017197658

PATIENT
  Age: 70 Year
  Sex: Male

DRUGS (11)
  1. NUCALA [Suspect]
     Active Substance: MEPOLIZUMAB
     Indication: ASTHMA
     Dosage: UNK UNK, CYC
     Route: 042
     Dates: start: 20161219
  2. VENTOLIN [Concomitant]
     Active Substance: ALBUTEROL SULFATE
  3. CEFDINIR. [Concomitant]
     Active Substance: CEFDINIR
  4. MONTELUKAST [Concomitant]
     Active Substance: MONTELUKAST SODIUM
  5. NUCALA [Suspect]
     Active Substance: MEPOLIZUMAB
     Dosage: UNK UNK, CYC
     Route: 042
     Dates: start: 20171220
  6. PREDNISONE. [Concomitant]
     Active Substance: PREDNISONE
  7. TERAZOSIN [Concomitant]
     Active Substance: TERAZOSIN\TERAZOSIN HYDROCHLORIDE
  8. FLOVENT [Concomitant]
     Active Substance: FLUTICASONE PROPIONATE
  9. FINASTERIDE. [Concomitant]
     Active Substance: FINASTERIDE
  10. FISH OIL [Concomitant]
     Active Substance: FISH OIL
  11. LIPITOR [Concomitant]
     Active Substance: ATORVASTATIN CALCIUM

REACTIONS (2)
  - Lower respiratory tract infection [Recovering/Resolving]
  - Therapy cessation [Unknown]

NARRATIVE: CASE EVENT DATE: 20171219
